FAERS Safety Report 16597323 (Version 4)
Quarter: 2020Q3

REPORT INFORMATION
  Report Type: Spontaneous
  Country: US (occurrence: US)
  Receive Date: 20190719
  Receipt Date: 20200928
  Transmission Date: 20201102
  Serious: No
  Sender: FDA-Public Use
  Company Number: US-PFIZER INC-2019311258

PATIENT
  Age: 52 Year
  Sex: Female

DRUGS (1)
  1. EUCRISA [Suspect]
     Active Substance: CRISABOROLE
     Indication: DERMATITIS CONTACT
     Dosage: 2 TIMES EVERYDAY A THIN LAYER TO THE AFFECTED AREA
     Route: 061

REACTIONS (1)
  - Therapeutic product effect incomplete [Unknown]
